FAERS Safety Report 13176904 (Version 1)
Quarter: 2017Q1

REPORT INFORMATION
  Report Type: Not Available
  Country: ES (occurrence: ES)
  Receive Date: 20170201
  Receipt Date: 20170201
  Transmission Date: 20170428
  Serious: Yes (Other)
  Sender: FDA-Public Use
  Company Number: ES-ANIPHARMA-2017-ES-000002

PATIENT
  Age: 50 Year
  Sex: Female

DRUGS (2)
  1. LITHIUM CARBONATE (NON-SPECIFIC) [Concomitant]
     Active Substance: LITHIUM
     Dosage: 800 MG PER DAY
  2. OXCARBAZEPINE (NON-SPECIFIC) [Suspect]
     Active Substance: OXCARBAZEPINE
     Dosage: 1200 MG PER DAY

REACTIONS (3)
  - Central nervous system lesion [Recovered/Resolved]
  - Encephalopathy [Recovered/Resolved]
  - Drug withdrawal syndrome [Recovered/Resolved]
